FAERS Safety Report 6716975-1 (Version None)
Quarter: 2010Q2

REPORT INFORMATION
  Report Type: 
  Country: None (occurrence: None)
  Receive Date: 20100505
  Receipt Date: 20100503
  Transmission Date: 20101027
  Serious: Yes (Other)
  Sender: FDA-Public Use
  Company Number: 1000012612

PATIENT
  Age: 60 Year
  Sex: Female

DRUGS (5)
  1. LEXAPRO [Suspect]
     Indication: DEPRESSION
     Dosage: 10 MG (10MG, 1 IN 1D), ORAL, 5MG (5MG, 1 IN1D), ORAL 10MG (10MG 1 IN 1D ORAL) 5 MG (5MG 1 IN1D) ORAL
     Route: 048
     Dates: end: 20091101
  2. LEXAPRO [Suspect]
     Indication: DEPRESSION
     Dosage: 10 MG (10MG, 1 IN 1D), ORAL, 5MG (5MG, 1 IN1D), ORAL 10MG (10MG 1 IN 1D ORAL) 5 MG (5MG 1 IN1D) ORAL
     Route: 048
     Dates: start: 20080101
  3. LEXAPRO [Suspect]
     Indication: DEPRESSION
     Dosage: 10 MG (10MG, 1 IN 1D), ORAL, 5MG (5MG, 1 IN1D), ORAL 10MG (10MG 1 IN 1D ORAL) 5 MG (5MG 1 IN1D) ORAL
     Route: 048
     Dates: start: 20091101
  4. FENTANYL [Concomitant]
  5. LORTAB [Concomitant]

REACTIONS (4)
  - CATARACT [None]
  - NIGHT BLINDNESS [None]
  - OPTIC NEUROPATHY [None]
  - PHOTOPHOBIA [None]
